FAERS Safety Report 5984400-4 (Version None)
Quarter: 2008Q4

REPORT INFORMATION
  Report Type: 
  Country: None (occurrence: None)
  Receive Date: 20081203
  Receipt Date: 20081203
  Transmission Date: 20090506
  Serious: Yes (Life-Threatening)
  Sender: FDA-Public Use
  Company Number: None

PATIENT
  Age: 34 Year
  Sex: Male
  Weight: 99.7913 kg

DRUGS (1)
  1. PROVENTIL-HFA [Suspect]
     Indication: ASTHMA
     Dosage: 2-4 PUFFS WHEN NEEDED INHAL
     Route: 055
     Dates: start: 20080601, end: 20081202

REACTIONS (2)
  - ASTHMA [None]
  - DRUG INEFFECTIVE [None]
